FAERS Safety Report 7822755-6 (Version None)
Quarter: 2011Q4

REPORT INFORMATION
  Report Type: 
  Country: None (occurrence: None)
  Receive Date: 20111018
  Receipt Date: 20111005
  Transmission Date: 20120403
  Serious: Yes (Other)
  Sender: FDA-Public Use
  Company Number: FR-MYLANLABS-2011S1020640

PATIENT
  Age: 66 Year
  Sex: Male

DRUGS (2)
  1. METFORMIN HCL [Suspect]
     Indication: PRODUCT USED FOR UNKNOWN INDICATION
  2. METFORMIN HCL [Suspect]

REACTIONS (6)
  - RENAL FAILURE [None]
  - ABDOMINAL PAIN UPPER [None]
  - DYSPNOEA [None]
  - MYALGIA [None]
  - RENAL PAIN [None]
  - DECREASED APPETITE [None]
